FAERS Safety Report 4945600-5 (Version None)
Quarter: 2006Q1

REPORT INFORMATION
  Report Type: 
  Country: None (occurrence: None)
  Receive Date: 20060117
  Receipt Date: 20051028
  Transmission Date: 20060701
  Serious: Yes (Other)
  Sender: FDA-Public Use
  Company Number: A03200503487

PATIENT
  Age: 75 Year
  Sex: Female
  Weight: 81.1939 kg

DRUGS (2)
  1. PLAVIX [Suspect]
     Indication: STENT PLACEMENT
     Dosage: 75 MG QD - ORAL
     Route: 048
     Dates: start: 20050201, end: 20051004
  2. ASA - ACETYLSALICYLIC ACID  - TABLET - UNIT DOSE : UNKNOWN [Suspect]
     Dosage: ORAL
     Route: 048
     Dates: end: 20051004

REACTIONS (3)
  - ABDOMINAL PAIN UPPER [None]
  - GASTRIC INFECTION [None]
  - HAEMATEMESIS [None]
